FAERS Safety Report 16129193 (Version 1)
Quarter: 2019Q1

REPORT INFORMATION
  Report Type: Spontaneous
  Country: US (occurrence: US)
  Receive Date: 20190328
  Receipt Date: 20190328
  Transmission Date: 20190418
  Serious: No
  Sender: FDA-Public Use
  Company Number: US-ASTRAZENECA-2018SF24670

PATIENT
  Age: 751 Month
  Sex: Male
  Weight: 88.5 kg

DRUGS (1)
  1. BYDUREON [Suspect]
     Active Substance: EXENATIDE
     Indication: TYPE 2 DIABETES MELLITUS
     Route: 058
     Dates: start: 201808

REACTIONS (1)
  - Injection site nodule [Recovering/Resolving]

NARRATIVE: CASE EVENT DATE: 201809
